FAERS Safety Report 7093869-6 (Version None)
Quarter: 2010Q4

REPORT INFORMATION
  Report Type: 
  Country: None (occurrence: None)
  Receive Date: 20101110
  Receipt Date: 20101102
  Transmission Date: 20110411
  Serious: Yes (Hospitalization)
  Sender: FDA-Public Use
  Company Number: B0682310A

PATIENT
  Age: 71 Year
  Sex: Male

DRUGS (8)
  1. VALACYCLOVIR HYDROCHLORIDE [Suspect]
     Indication: PRODUCT USED FOR UNKNOWN INDICATION
     Dosage: 500MG TWICE PER DAY
     Route: 048
     Dates: end: 20100909
  2. MABTHERA [Suspect]
     Indication: CHRONIC LYMPHOCYTIC LEUKAEMIA
     Dosage: 940MG PER DAY
     Route: 042
     Dates: start: 20100809, end: 20100809
  3. CARBOPLATIN [Suspect]
     Indication: CHRONIC LYMPHOCYTIC LEUKAEMIA
     Dosage: 330MG PER DAY
     Route: 042
     Dates: start: 20100809, end: 20100809
  4. ARACYTINE [Suspect]
     Indication: CHRONIC LYMPHOCYTIC LEUKAEMIA
     Dosage: 1.9G TWICE PER DAY
     Route: 042
     Dates: start: 20100809, end: 20100809
  5. DEXAMETHASONE SODIUM PHOSPHATE [Suspect]
     Indication: PRODUCT USED FOR UNKNOWN INDICATION
     Dosage: 40MG TWICE PER DAY
     Route: 042
     Dates: start: 20100809, end: 20100810
  6. NISIS [Suspect]
     Indication: PRODUCT USED FOR UNKNOWN INDICATION
     Dosage: 80MG PER DAY
     Route: 048
     Dates: end: 20100909
  7. SOTALEX [Concomitant]
     Dosage: 80MG TWICE PER DAY
     Route: 065
  8. KARDEGIC [Concomitant]
     Dosage: 160MG PER DAY
     Route: 065

REACTIONS (4)
  - ASTHENIA [None]
  - NEUTROPENIA [None]
  - PANCYTOPENIA [None]
  - PYREXIA [None]
